FAERS Safety Report 9263658 (Version 3)
Quarter: 2013Q2

REPORT INFORMATION
  Report Type: Spontaneous
  Country: US (occurrence: US)
  Receive Date: 20130430
  Receipt Date: 20130627
  Transmission Date: 20140414
  Serious: Yes (Death, Hospitalization)
  Sender: FDA-Public Use
  Company Number: US-LUNDBECK-DKLU1090560

PATIENT
  Age: 10 Year
  Sex: Male

DRUGS (2)
  1. SABRIL (FOR ORAL SOLUTION) [Suspect]
     Indication: INFANTILE SPASMS
     Route: 048
     Dates: start: 20120201
  2. SABRIL (FOR ORAL SOLUTION) [Suspect]
     Indication: TUBEROUS SCLEROSIS

REACTIONS (3)
  - Cardiac arrest [Fatal]
  - Cerebrovascular accident [Fatal]
  - Brain oedema [Fatal]
